FAERS Safety Report 7397646-8 (Version None)
Quarter: 2011Q2

REPORT INFORMATION
  Report Type: 
  Country: None (occurrence: None)
  Receive Date: 20110406
  Receipt Date: 20110330
  Transmission Date: 20111010
  Serious: Yes (Death)
  Sender: FDA-Public Use
  Company Number: JP-ASTRAZENECA-2011SE11146

PATIENT
  Age: 36 Year
  Sex: Female

DRUGS (23)
  1. SEROQUEL [Suspect]
     Dosage: MORE THAN 200 TABLETS (THERE WAS A POSSIBILITY THAT PATIENT STORED OTHER DRUGS PRESCRIBED BEFORE)
     Route: 048
  2. MAGLAX [Concomitant]
     Route: 048
     Dates: start: 20090620
  3. BUFFERIN A [Concomitant]
     Indication: SUICIDE ATTEMPT
     Dates: start: 20110222, end: 20110222
  4. RISPERDONE [Concomitant]
     Indication: SUICIDE ATTEMPT
     Route: 048
     Dates: start: 20110222, end: 20110222
  5. QUAZEPAM [Concomitant]
     Indication: SUICIDE ATTEMPT
     Route: 048
     Dates: start: 20110222, end: 20110222
  6. PAROXETINE HYDROCHLORIDE [Concomitant]
     Indication: SUICIDE ATTEMPT
     Route: 048
     Dates: start: 20110222, end: 20110222
  7. ALPRAZOLAM [Concomitant]
     Indication: SUICIDE ATTEMPT
     Route: 048
     Dates: start: 20110222, end: 20110222
  8. SEROQUEL [Suspect]
     Route: 048
     Dates: start: 20100123, end: 20110215
  9. SEROQUEL [Suspect]
     Route: 048
     Dates: start: 20110216, end: 20110221
  10. FLUNITRAZEPAM [Concomitant]
     Indication: SUICIDE ATTEMPT
     Route: 048
     Dates: start: 20110216, end: 20110222
  11. SENNOSIDE [Concomitant]
     Route: 048
     Dates: start: 20110216
  12. SEROQUEL [Suspect]
     Route: 048
     Dates: start: 20110216, end: 20110221
  13. SEROQUEL [Suspect]
     Route: 048
     Dates: start: 20110222, end: 20110222
  14. LEXOTAN [Concomitant]
     Indication: SUICIDE ATTEMPT
     Route: 048
     Dates: start: 20110222, end: 20110222
  15. SEROQUEL [Suspect]
     Indication: SUICIDE ATTEMPT
     Route: 048
     Dates: start: 20090704, end: 20100122
  16. SEROQUEL [Suspect]
     Route: 048
     Dates: start: 20100123, end: 20110215
  17. SEROQUEL [Suspect]
     Route: 048
     Dates: start: 20110222, end: 20110222
  18. SEROQUEL [Suspect]
     Dosage: MORE THAN 200 TABLETS (THERE WAS A POSSIBILITY THAT PATIENT STORED OTHER DRUGS PRESCRIBED BEFORE)
     Route: 048
  19. BROTIZOLAM [Concomitant]
     Indication: SUICIDE ATTEMPT
     Route: 048
     Dates: start: 20110222, end: 20110222
  20. LORMETAZEPAM [Concomitant]
     Indication: SUICIDE ATTEMPT
     Route: 048
     Dates: start: 20110222, end: 20110222
  21. CARBAMAZEPINE [Concomitant]
     Indication: HEPATIC FUNCTION ABNORMAL
  22. SEROQUEL [Suspect]
     Indication: BIPOLAR II DISORDER
     Route: 048
     Dates: start: 20090704, end: 20100122
  23. SEVEN EP [Concomitant]
     Route: 048
     Dates: start: 20090620

REACTIONS (2)
  - COMPLETED SUICIDE [None]
  - INTENTIONAL OVERDOSE [None]
